FAERS Safety Report 6509476-7 (Version None)
Quarter: 2009Q4

REPORT INFORMATION
  Report Type: 
  Country: None (occurrence: None)
  Receive Date: 20091222
  Receipt Date: 20091214
  Transmission Date: 20100525
  Serious: Yes (Hospitalization, Disabling, Other)
  Sender: FDA-Public Use
  Company Number: JP-BRISTOL-MYERS SQUIBB COMPANY-14609333

PATIENT
  Age: 52 Year
  Sex: Male

DRUGS (12)
  1. SPRYCEL [Suspect]
     Indication: ACUTE LYMPHOCYTIC LEUKAEMIA
     Dosage: DASATINIB INITIALLY 140MG/D 18JUN08-17JUL08
     Route: 048
     Dates: start: 20090303, end: 20090420
  2. CLINDAMYCIN HCL [Suspect]
  3. GANCICLOVIR [Suspect]
     Dosage: 230MG ON 27APR, 460MG ON 28APR, 230MG ON 29APR09.
     Route: 042
     Dates: start: 20090427
  4. AMLODIN [Concomitant]
     Route: 048
  5. ZOVIRAX [Concomitant]
     Route: 048
  6. PREDNISOLONE [Concomitant]
     Route: 048
  7. AMOBAN [Concomitant]
     Route: 048
     Dates: start: 20090406
  8. MIYA-BM [Concomitant]
     Route: 048
  9. ACYCLOVIR [Concomitant]
     Route: 048
  10. URSO 250 [Concomitant]
     Route: 048
     Dates: start: 20090429
  11. SENNOSIDE A+B [Concomitant]
     Route: 048
  12. FLUCONAZOLE [Concomitant]
     Route: 048
     Dates: start: 20090429

REACTIONS (6)
  - ANAEMIA [None]
  - FATIGUE [None]
  - HEPATIC FUNCTION ABNORMAL [None]
  - INTERSTITIAL LUNG DISEASE [None]
  - PLATELET COUNT DECREASED [None]
  - PNEUMOCYSTIS JIROVECI PNEUMONIA [None]
